FAERS Safety Report 15894210 (Version 2)
Quarter: 2019Q3

REPORT INFORMATION
  Report Type: Spontaneous
  Country: US (occurrence: US)
  Receive Date: 20190131
  Receipt Date: 20190717
  Transmission Date: 20191004
  Serious: Yes (Other)
  Sender: FDA-Public Use
  Company Number: US-LUNDBECK-DKLU2059906

PATIENT
  Sex: Male

DRUGS (11)
  1. DEPAKOTE [Concomitant]
     Active Substance: DIVALPROEX SODIUM
     Indication: PRODUCT USED FOR UNKNOWN INDICATION
     Route: 065
  2. LAMICTAL [Concomitant]
     Active Substance: LAMOTRIGINE
     Indication: PRODUCT USED FOR UNKNOWN INDICATION
     Route: 065
  3. VIMPAT [Concomitant]
     Active Substance: LACOSAMIDE
     Indication: PRODUCT USED FOR UNKNOWN INDICATION
     Route: 065
  4. ONFI [Suspect]
     Active Substance: CLOBAZAM
     Indication: PRODUCT USED FOR UNKNOWN INDICATION
     Route: 065
  5. ONFI [Suspect]
     Active Substance: CLOBAZAM
     Route: 065
  6. ONFI [Suspect]
     Active Substance: CLOBAZAM
     Route: 065
  7. ONFI [Suspect]
     Active Substance: CLOBAZAM
     Route: 065
  8. EPIDIOLEX [Suspect]
     Active Substance: CANNABIDIOL
     Indication: PRODUCT USED FOR UNKNOWN INDICATION
     Route: 065
     Dates: start: 20181208
  9. ONFI [Suspect]
     Active Substance: CLOBAZAM
     Route: 065
  10. LAMOTRIGINE. [Concomitant]
     Active Substance: LAMOTRIGINE
     Indication: PRODUCT USED FOR UNKNOWN INDICATION
     Route: 065
  11. LORAZEPAM. [Concomitant]
     Active Substance: LORAZEPAM
     Indication: PRODUCT USED FOR UNKNOWN INDICATION
     Route: 065

REACTIONS (8)
  - Cognitive disorder [Unknown]
  - Gait inability [Unknown]
  - Alanine aminotransferase increased [Unknown]
  - Anticonvulsant drug level increased [Unknown]
  - Sedation [Unknown]
  - Fall [Unknown]
  - Drug withdrawal convulsions [Unknown]
  - Aspartate aminotransferase increased [Unknown]
